FAERS Safety Report 19369097 (Version 2)
Quarter: 2021Q2

REPORT INFORMATION
  Report Type: Spontaneous
  Country: US (occurrence: US)
  Receive Date: 20210603
  Receipt Date: 20210603
  Transmission Date: 20210717
  Serious: No
  Sender: FDA-Public Use
  Company Number: US-SPECGX-T202001382

PATIENT
  Sex: Female

DRUGS (3)
  1. RESTASIS [Concomitant]
     Active Substance: CYCLOSPORINE
     Indication: EYE DISORDER
     Dosage: UNK
     Route: 065
  2. HYDROCODONE/ACETAMINOPHEN [Suspect]
     Active Substance: ACETAMINOPHEN\HYDROCODONE
     Indication: BACK PAIN
     Dosage: 10/325 MG AS NEEDED
     Route: 048
  3. PRAVASTATIN. [Concomitant]
     Active Substance: PRAVASTATIN
     Indication: PRODUCT USED FOR UNKNOWN INDICATION
     Dosage: UNK
     Route: 065

REACTIONS (8)
  - Pruritus [Not Recovered/Not Resolved]
  - Musculoskeletal discomfort [Unknown]
  - Acne [Not Recovered/Not Resolved]
  - Nervous system disorder [Unknown]
  - Visual impairment [Unknown]
  - Limb discomfort [Unknown]
  - Rash [Not Recovered/Not Resolved]
  - Therapeutic response unexpected [Unknown]
